FAERS Safety Report 4894909-2 (Version None)
Quarter: 2006Q1

REPORT INFORMATION
  Report Type: 
  Country: None (occurrence: None)
  Receive Date: 20060130
  Receipt Date: 20050222
  Transmission Date: 20060701
  Serious: No
  Sender: FDA-Public Use
  Company Number: US-BRISTOL-MYERS SQUIBB COMPANY-12871687

PATIENT
  Age: 65 Year
  Sex: Male
  Weight: 84 kg

DRUGS (5)
  1. GLUCOPHAGE [Suspect]
     Indication: DIABETES MELLITUS
     Route: 048
     Dates: start: 19960101, end: 20050201
  2. GLYBURIDE [Concomitant]
  3. ACTOS [Concomitant]
  4. VASOTEC [Concomitant]
  5. NORVASC [Concomitant]

REACTIONS (1)
  - ANAEMIA MACROCYTIC [None]
